FAERS Safety Report 22283304 (Version 3)
Quarter: 2023Q4

REPORT INFORMATION
  Report Type: Report from Study
  Country: US (occurrence: US)
  Receive Date: 20230504
  Receipt Date: 20231012
  Transmission Date: 20240110
  Serious: Yes (Other)
  Sender: FDA-Public Use
  Company Number: US-002147023-NVSC2023US098146

PATIENT
  Sex: Male

DRUGS (3)
  1. ENTRESTO [Suspect]
     Active Substance: SACUBITRIL\VALSARTAN
     Indication: Product used for unknown indication
     Dosage: 1 DOSAGE FORM, (24/26 MG), BID
     Route: 048
     Dates: start: 20221204
  2. ENTRESTO [Suspect]
     Active Substance: SACUBITRIL\VALSARTAN
     Dosage: UNK
     Route: 065
     Dates: start: 20230418
  3. ENTRESTO [Suspect]
     Active Substance: SACUBITRIL\VALSARTAN
     Dosage: 49.51 MG, BID (SAID GOING TO GO TO 97/103 TWICE DAY)
     Route: 048

REACTIONS (6)
  - Cardiac dysfunction [Unknown]
  - Fatigue [Unknown]
  - Weight increased [Unknown]
  - Blood pressure decreased [Recovering/Resolving]
  - Physical product label issue [Unknown]
  - Product dose omission issue [Unknown]
